FAERS Safety Report 15959309 (Version 7)
Quarter: 2021Q1

REPORT INFORMATION
  Report Type: Spontaneous
  Country: DE (occurrence: DE)
  Receive Date: 20190214
  Receipt Date: 20210113
  Transmission Date: 20210419
  Serious: Yes (Hospitalization, Other)
  Sender: FDA-Public Use
  Company Number: DE-AUROBINDO-AUR-APL-2019-007867

PATIENT
  Age: 50 Year
  Sex: Female
  Weight: 98 kg

DRUGS (4)
  1. KISQALI [Suspect]
     Active Substance: RIBOCICLIB
     Indication: BREAST CANCER METASTATIC
     Dosage: 600 MILLIGRAM, ONCE A DAY,600 MG, QD
     Route: 048
     Dates: start: 20190115, end: 20191028
  2. IBUPROFEN. [Concomitant]
     Active Substance: IBUPROFEN
     Indication: BONE PAIN
     Dosage: 600 MILLIGRAM, ONCE A DAY,600 MG, QD
     Route: 048
     Dates: start: 20190111
  3. LETROZOLE. [Suspect]
     Active Substance: LETROZOLE
     Indication: BREAST CANCER METASTATIC
     Dosage: 2.5 MILLIGRAM, ONCE A DAY,2.5 MG, QD
     Route: 048
     Dates: start: 20190115, end: 20191028
  4. RAMIPRIL. [Concomitant]
     Active Substance: RAMIPRIL
     Indication: HYPERTENSION
     Dosage: 5 MILLIGRAM, ONCE A DAY,5 MG, QD
     Route: 048
     Dates: start: 20190115

REACTIONS (14)
  - Blood glucose increased [Unknown]
  - Haemoglobin decreased [Unknown]
  - Blood iron increased [Unknown]
  - Thrombocytopenia [Recovered/Resolved]
  - Lymphocyte count increased [Unknown]
  - Pancytopenia [Recovered/Resolved]
  - Basophil count increased [Unknown]
  - Gamma-glutamyltransferase increased [Unknown]
  - Neutrophil count decreased [Recovered/Resolved]
  - C-reactive protein increased [Unknown]
  - Blood potassium decreased [Unknown]
  - Eosinophil count decreased [Unknown]
  - Red blood cell count decreased [Unknown]
  - Epistaxis [Recovered/Resolved]

NARRATIVE: CASE EVENT DATE: 20190125
